FAERS Safety Report 23211207 (Version 1)
Quarter: 2023Q4

REPORT INFORMATION
  Report Type: Spontaneous
  Country: US (occurrence: None)
  Receive Date: 20231120
  Receipt Date: 20231120
  Transmission Date: 20240110
  Serious: Yes (Other)
  Sender: FDA-Public Use
  Company Number: None

PATIENT
  Age: 7 Month
  Sex: Male
  Weight: 7.18 kg

DRUGS (4)
  1. NIRSEVIMAB [Suspect]
     Active Substance: NIRSEVIMAB
     Indication: Premature baby
     Dosage: 10 MG ONCE INTRAMUSCULAR?
     Route: 030
     Dates: start: 20231108, end: 20231108
  2. FAMOTIDINE [Concomitant]
     Active Substance: FAMOTIDINE
     Dates: start: 20230711
  3. IRON [Concomitant]
     Active Substance: IRON
     Dates: start: 20230622
  4. ALBUTEROL [Concomitant]
     Active Substance: ALBUTEROL
     Dates: start: 20230922

REACTIONS (1)
  - Seizure [None]

NARRATIVE: CASE EVENT DATE: 20231114
